FAERS Safety Report 7180059-1 (Version None)
Quarter: 2010Q4

REPORT INFORMATION
  Report Type: 
  Country: None (occurrence: None)
  Receive Date: 20101209
  Receipt Date: 20101130
  Transmission Date: 20110411
  Serious: Yes (Hospitalization)
  Sender: FDA-Public Use
  Company Number: 2010US004672

PATIENT
  Age: 74 Year
  Sex: Female

DRUGS (10)
  1. VESICARE [Suspect]
     Indication: INCONTINENCE
     Dosage: 5 MG, UID/QD, ORAL; 5 MG, BID, ORAL
     Route: 048
     Dates: start: 20090101
  2. LIPITOR [Concomitant]
  3. ZETIA [Concomitant]
  4. TOPROL-XL [Concomitant]
  5. COUMADIN [Concomitant]
  6. MULTIVITAMIN [Concomitant]
  7. ASPIRIN [Concomitant]
  8. CALCIUM (CALCIUM) [Concomitant]
  9. OMEGA-EFA (DOCOSAHEXANOIC ACID, EICOSAPENTAENOIC ACID, GAMOLENIC ACID, [Concomitant]
  10. CINNAMON (CINNAMOMUM VERUM) [Concomitant]

REACTIONS (5)
  - AMNESIA [None]
  - DRUG INEFFECTIVE [None]
  - LIMB DISCOMFORT [None]
  - SURGERY [None]
  - URINARY TRACT INFECTION [None]
